FAERS Safety Report 23649379 (Version 4)
Quarter: 2024Q4

REPORT INFORMATION
  Report Type: Report from Study
  Country: FR (occurrence: FR)
  Receive Date: 20240319
  Receipt Date: 20241223
  Transmission Date: 20250115
  Serious: Yes (Other)
  Sender: TAKEDA
  Company Number: FR-TAKEDA-2024TUS024462

PATIENT
  Sex: Female

DRUGS (2)
  1. VELAGLUCERASE ALFA [Suspect]
     Active Substance: VELAGLUCERASE ALFA
     Indication: Gaucher^s disease type I
     Dosage: 14 DOSAGE FORM, Q3WEEKS
     Dates: start: 200504
  2. VELAGLUCERASE ALFA [Suspect]
     Active Substance: VELAGLUCERASE ALFA
     Dosage: UNK UNK, Q3WEEKS
     Dates: start: 2005

REACTIONS (11)
  - Nausea [Unknown]
  - COVID-19 [Recovered/Resolved]
  - Family stress [Recovering/Resolving]
  - Anxiety [Not Recovered/Not Resolved]
  - Insomnia [Not Recovered/Not Resolved]
  - Dermatitis atopic [Recovering/Resolving]
  - Herpes zoster [Unknown]
  - Neurodermatitis [Unknown]
  - Fall [Unknown]
  - Wrist fracture [Recovered/Resolved]
  - Incorrect drug administration rate [Unknown]

NARRATIVE: CASE EVENT DATE: 20230101
